FAERS Safety Report 4909760-4 (Version None)
Quarter: 2006Q1

REPORT INFORMATION
  Report Type: 
  Country: None (occurrence: None)
  Receive Date: 20060208
  Receipt Date: 20060206
  Transmission Date: 20060701
  Serious: Yes (Other)
  Sender: FDA-Public Use
  Company Number: 200512644BWH

PATIENT
  Age: 37 Year
  Sex: Male

DRUGS (1)
  1. AVELOX [Suspect]
     Indication: TONSILLITIS

REACTIONS (2)
  - DIABETES MELLITUS [None]
  - DYSPNOEA [None]
